FAERS Safety Report 22058340 (Version 1)
Quarter: 2023Q1

REPORT INFORMATION
  Report Type: Report from Study
  Country: IE (occurrence: IE)
  Receive Date: 20230303
  Receipt Date: 20230303
  Transmission Date: 20230418
  Serious: Yes (Hospitalization)
  Sender: FDA-Public Use
  Company Number: IE-JNJFOC-20201103844

PATIENT
  Age: 75 Year
  Sex: Male

DRUGS (17)
  1. ZYTIGA [Suspect]
     Active Substance: ABIRATERONE ACETATE
     Indication: Prostate cancer metastatic
     Route: 048
     Dates: start: 20200214, end: 202009
  2. BISOPROLOL [Concomitant]
     Active Substance: BISOPROLOL
     Route: 050
  3. FUROSEMIDE [Concomitant]
     Active Substance: FUROSEMIDE
     Route: 050
  4. ATORVASTATIN [Concomitant]
     Active Substance: ATORVASTATIN
     Route: 050
  5. DUTASTERIDE\TAMSULOSIN [Concomitant]
     Active Substance: DUTASTERIDE\TAMSULOSIN
     Route: 050
  6. METFORMIN HYDROCHLORIDE [Concomitant]
     Active Substance: METFORMIN HYDROCHLORIDE
     Route: 050
  7. LOSARTAN [Concomitant]
     Active Substance: LOSARTAN
     Route: 050
  8. ELIQUIS [Concomitant]
     Active Substance: APIXABAN
     Route: 050
  9. MIRABEGRON [Concomitant]
     Active Substance: MIRABEGRON
     Route: 050
  10. OXYBUTYNIN [Concomitant]
     Active Substance: OXYBUTYNIN
     Route: 050
  11. SEMAGLUTIDE [Concomitant]
     Active Substance: SEMAGLUTIDE
     Route: 050
  12. GONADORELIN [Concomitant]
     Active Substance: GONADORELIN
  13. BICALUTAMIDE [Concomitant]
     Active Substance: BICALUTAMIDE
     Route: 050
  14. AMOXICILLIN [Concomitant]
     Active Substance: AMOXICILLIN
     Route: 050
  15. ESOMEPRAZOLE [Concomitant]
     Active Substance: ESOMEPRAZOLE
     Route: 050
  16. PREDNISONE [Concomitant]
     Active Substance: PREDNISONE
     Route: 050
  17. DEXAMETHASONE [Concomitant]
     Active Substance: DEXAMETHASONE
     Route: 050

REACTIONS (1)
  - Bone cancer [Unknown]

NARRATIVE: CASE EVENT DATE: 20200830
